FAERS Safety Report 7374155-3 (Version None)
Quarter: 2011Q1

REPORT INFORMATION
  Report Type: 
  Country: None (occurrence: None)
  Receive Date: 20110325
  Receipt Date: 20110228
  Transmission Date: 20110831
  Serious: Yes (Hospitalization, Other)
  Sender: FDA-Public Use
  Company Number: US-BAYER-201038149NA

PATIENT
  Sex: Female
  Weight: 81.633 kg

DRUGS (7)
  1. YASMIN [Suspect]
     Indication: PREMENSTRUAL SYNDROME
     Dosage: UNK
     Dates: start: 20041201, end: 20050801
  2. PROTONIX [Concomitant]
     Dosage: 40 MG, QD
     Route: 048
  3. YASMIN [Suspect]
     Indication: CONTRACEPTION
     Dosage: UNK
     Route: 048
     Dates: start: 20070101, end: 20090101
  4. YASMIN [Suspect]
     Dosage: UNK
     Dates: start: 20060201, end: 20060601
  5. WARFARIN SODIUM [Concomitant]
     Dosage: 5 MG, UNK
     Route: 048
  6. ALBUTEROL [Concomitant]
     Dosage: 0.09 MG, UNK
  7. HYOSCYAMINE [Concomitant]
     Dosage: 375 MG, UNK

REACTIONS (1)
  - PULMONARY EMBOLISM [None]
